FAERS Safety Report 5308719-5 (Version None)
Quarter: 2007Q2

REPORT INFORMATION
  Report Type: 
  Country: None (occurrence: None)
  Receive Date: 20070426
  Receipt Date: 20070420
  Transmission Date: 20071010
  Serious: Yes (Other)
  Sender: FDA-Public Use
  Company Number: RU-GLAXOSMITHKLINE-B0468017A

PATIENT
  Age: 57 Year
  Sex: Male

DRUGS (2)
  1. PAXIL [Suspect]
     Indication: DEPRESSION
     Dosage: 20MG PER DAY
     Route: 065
     Dates: start: 20070303
  2. ARIFON [Concomitant]
     Indication: HYPERTENSION
     Route: 065

REACTIONS (1)
  - HYPERTENSIVE CRISIS [None]
